FAERS Safety Report 9059933 (Version 9)
Quarter: 2014Q3

REPORT INFORMATION
  Report Type: Report from Study
  Country: US (occurrence: US)
  Receive Date: 20130212
  Receipt Date: 20140923
  Transmission Date: 20150326
  Serious: Yes (Hospitalization, Other)
  Sender: FDA-Public Use
  Company Number: PHHO2013US002041

PATIENT
  Age: 50 Year
  Sex: Male
  Weight: 119.1 kg

DRUGS (15)
  1. MIDODRINE [Suspect]
     Active Substance: MIDODRINE
     Indication: HYPERTENSION
     Dosage: 10 MG, PRN
     Route: 065
     Dates: start: 201204
  2. AMBIEN [Concomitant]
     Active Substance: ZOLPIDEM TARTRATE
     Indication: INSOMNIA
     Dosage: 20 MG, SID
     Dates: start: 200810
  3. SANDOSTATIN LAR DEPOT [Concomitant]
     Active Substance: OCTREOTIDE ACETATE
     Indication: CARCINOID SYNDROME
     Dosage: 40 MG, QW3
     Route: 042
  4. AFINITOR [Suspect]
     Active Substance: EVEROLIMUS
     Indication: NEUROENDOCRINE TUMOUR
     Dosage: 10 MG, QW
     Route: 048
     Dates: start: 20121220
  5. MAGNESIUM OXIDE. [Concomitant]
     Active Substance: MAGNESIUM OXIDE
     Indication: HYPOMAGNESAEMIA
     Dosage: 400 MG, TID
     Dates: start: 201109
  6. FLUDROCORTISONE [Suspect]
     Active Substance: FLUDROCORTISONE
     Indication: HYPERTENSION
     Dosage: 0.1 MG, QW3
     Route: 065
     Dates: start: 201201
  7. HYDROMORPHONE [Concomitant]
     Active Substance: HYDROMORPHONE
     Indication: ABDOMINAL PAIN
     Dosage: 2 MG, PRN
     Dates: start: 201201
  8. PROTONIX [Concomitant]
     Active Substance: PANTOPRAZOLE SODIUM
     Indication: GASTROOESOPHAGEAL REFLUX DISEASE
     Dosage: 40 MG, SID
     Route: 065
  9. URSODIOL. [Concomitant]
     Active Substance: URSODIOL
     Indication: PAIN
     Dosage: 300 MG, BID
     Dates: start: 20130426
  10. BEZ235 [Suspect]
     Active Substance: DACTOLISIB
     Indication: NEUROENDOCRINE TUMOUR
     Dosage: 50 MG, BID
     Route: 048
     Dates: start: 20121220
  11. FENTANYL. [Suspect]
     Active Substance: FENTANYL
  12. OXYBUTYNIN [Concomitant]
     Active Substance: OXYBUTYNIN
     Indication: CARCINOID SYNDROME
     Dosage: 10 MG, SID
     Dates: start: 20110702
  13. CYCLOBENZAPRINE [Concomitant]
     Active Substance: CYCLOBENZAPRINE
     Indication: MYALGIA
     Dosage: 10 MG, TID (PRN)
     Dates: start: 20130103
  14. GLIPIZIDE. [Concomitant]
     Active Substance: GLIPIZIDE
     Indication: DIABETES MELLITUS
     Dosage: 2.5 MG, SID
     Route: 065
     Dates: start: 201011
  15. MELATONIN [Concomitant]
     Active Substance: MELATONIN
     Indication: INSOMNIA
     Dosage: 5 MG, QD

REACTIONS (5)
  - Abdominal pain [Recovered/Resolved]
  - Nephrolithiasis [Recovered/Resolved]
  - Hypoxia [Recovered/Resolved]
  - Renal failure [Recovered/Resolved]
  - Hypotension [Recovered/Resolved]

NARRATIVE: CASE EVENT DATE: 20130203
